FAERS Safety Report 25320183 (Version 1)
Quarter: 2025Q2

REPORT INFORMATION
  Report Type: Spontaneous
  Country: US (occurrence: None)
  Receive Date: 20250515
  Receipt Date: 20250515
  Transmission Date: 20250717
  Serious: Yes (Hospitalization, Disabling)
  Sender: FDA-CTU
  Company Number: None

PATIENT
  Age: 56 Year
  Sex: Male
  Weight: 59.85 kg

DRUGS (3)
  1. RECLAST [Suspect]
     Active Substance: ZOLEDRONIC ACID
     Indication: Osteoporosis
     Route: 042
     Dates: start: 20250430, end: 20250501
  2. TYLENOL [Concomitant]
     Active Substance: ACETAMINOPHEN
  3. FIORICET [Concomitant]
     Active Substance: ACETAMINOPHEN\BUTALBITAL\CAFFEINE

REACTIONS (8)
  - Pyrexia [None]
  - Headache [None]
  - Dizziness [None]
  - Somnolence [None]
  - Musculoskeletal stiffness [None]
  - Nausea [None]
  - Brain fog [None]
  - Movement disorder [None]

NARRATIVE: CASE EVENT DATE: 20250430
